FAERS Safety Report 8434196-1 (Version None)
Quarter: 2012Q2

REPORT INFORMATION
  Report Type: 
  Country: None (occurrence: None)
  Receive Date: 20120613
  Receipt Date: 20120606
  Transmission Date: 20120825
  Serious: Yes (Hospitalization)
  Sender: FDA-Public Use
  Company Number: CA-EISAI INC-E7389-02153-CLI-CA

PATIENT
  Sex: Female
  Weight: 73 kg

DRUGS (1)
  1. EPIRUBICIN HYDROCHLORIDE [Suspect]
     Indication: BREAST CANCER
     Dosage: UNKNOWN
     Route: 041
     Dates: start: 20120214

REACTIONS (1)
  - PNEUMONIA [None]
